FAERS Safety Report 6336394-X (Version None)
Quarter: 2009Q3

REPORT INFORMATION
  Report Type: 
  Country: None (occurrence: None)
  Receive Date: 20090828
  Receipt Date: 20090818
  Transmission Date: 20100115
  Serious: Yes (Other)
  Sender: FDA-Public Use
  Company Number: ADR13132009

PATIENT
  Age: 74 Year
  Sex: Female

DRUGS (3)
  1. CITALOPRAM HYDROBROMIDE [Suspect]
     Indication: DEPRESSION
     Dosage: 10MG ORAL
     Route: 048
     Dates: start: 20070601, end: 20070604
  2. AMITRIPTYLINE [Concomitant]
  3. FLUPENTIXOL [Concomitant]

REACTIONS (3)
  - DYSPHAGIA [None]
  - MUSCULAR WEAKNESS [None]
  - TREMOR [None]
